FAERS Safety Report 5327589-2 (Version None)
Quarter: 2007Q2

REPORT INFORMATION
  Report Type: 
  Country: None (occurrence: None)
  Receive Date: 20070517
  Receipt Date: 20070122
  Transmission Date: 20071010
  Serious: Yes (Other)
  Sender: FDA-Public Use
  Company Number: US-JNJFOC-20070104028

PATIENT
  Age: 26 Year
  Sex: Male

DRUGS (3)
  1. TRAMADOL HCL [Suspect]
     Indication: UNEVALUABLE EVENT
     Route: 048
  2. CARISOPRODOL [Suspect]
     Indication: UNEVALUABLE EVENT
     Route: 048
  3. BENZODIAZEPINE [Suspect]
     Indication: UNEVALUABLE EVENT
     Route: 048

REACTIONS (5)
  - DRUG ABUSER [None]
  - EYE MOVEMENT DISORDER [None]
  - INTENTIONAL DRUG MISUSE [None]
  - NONSPECIFIC REACTION [None]
  - TREMOR [None]
